FAERS Safety Report 7980783-4 (Version None)
Quarter: 2011Q4

REPORT INFORMATION
  Report Type: 
  Country: None (occurrence: None)
  Receive Date: 20111214
  Receipt Date: 20111205
  Transmission Date: 20120403
  Serious: Yes (Hospitalization)
  Sender: FDA-Public Use
  Company Number: US-ASTRAZENECA-2011SE73829

PATIENT
  Age: 71 Year
  Sex: Male

DRUGS (2)
  1. PRILOSEC [Suspect]
     Route: 048
  2. NEXIUM [Suspect]
     Route: 048

REACTIONS (6)
  - PROSTATIC DISORDER [None]
  - RENAL DISORDER [None]
  - SKIN INFECTION [None]
  - CHEST DISCOMFORT [None]
  - DIABETES MELLITUS [None]
  - GASTRIC DISORDER [None]
